FAERS Safety Report 12481708 (Version 1)
Quarter: 2016Q2

REPORT INFORMATION
  Report Type: Spontaneous
  Country: ES (occurrence: ES)
  Receive Date: 20160620
  Receipt Date: 20160620
  Transmission Date: 20160815
  Serious: Yes (Hospitalization)
  Sender: FDA-Public Use
  Company Number: PHHY2016ES080310

PATIENT
  Age: 10 Year
  Sex: Female

DRUGS (7)
  1. ETOPOSIDE. [Concomitant]
     Active Substance: ETOPOSIDE
     Indication: HISTIOCYTOSIS HAEMATOPHAGIC
     Dosage: UNK
     Route: 065
  2. DEXAMETHASONE. [Concomitant]
     Active Substance: DEXAMETHASONE
     Indication: HISTIOCYTOSIS HAEMATOPHAGIC
     Dosage: UNK
     Route: 065
  3. CANAKINUMAB [Concomitant]
     Active Substance: CANAKINUMAB
     Indication: HISTIOCYTOSIS HAEMATOPHAGIC
     Dosage: 4 MG/KG, ONCE EVERY 4 WEEKS
     Route: 058
     Dates: start: 201310, end: 201401
  4. TOCILIZUMAB [Concomitant]
     Active Substance: TOCILIZUMAB
     Indication: HISTIOCYTOSIS HAEMATOPHAGIC
     Dosage: 8 MG/KG, SIX CYCLES
     Route: 065
     Dates: start: 201307, end: 201309
  5. CICLOSPORIN [Suspect]
     Active Substance: CYCLOSPORINE
     Indication: HISTIOCYTOSIS HAEMATOPHAGIC
     Dosage: 2 MG/KG, QD (3 PULSES)
     Route: 065
  6. METHYLPREDNISOLONE. [Suspect]
     Active Substance: METHYLPREDNISOLONE
     Indication: HISTIOCYTOSIS HAEMATOPHAGIC
     Dosage: 30 MG/KG, QD (3 PULSES)
     Route: 065
  7. ANAKINRA [Concomitant]
     Active Substance: ANAKINRA
     Indication: HISTIOCYTOSIS HAEMATOPHAGIC
     Dosage: 6 MG/KG, QD
     Route: 065

REACTIONS (2)
  - Product use issue [Unknown]
  - Histiocytosis haematophagic [Recovered/Resolved]
